FAERS Safety Report 8375223-X (Version None)
Quarter: 2012Q2

REPORT INFORMATION
  Report Type: 
  Country: None (occurrence: None)
  Receive Date: 20120522
  Receipt Date: 20120507
  Transmission Date: 20120825
  Serious: Yes (Disabling)
  Sender: FDA-Public Use
  Company Number: DE-BRISTOL-MYERS SQUIBB COMPANY-16587610

PATIENT
  Sex: Male

DRUGS (1)
  1. MITOMYCIN [Suspect]
     Indication: EYE LASER SURGERY
     Dosage: INJECTION
     Route: 031
     Dates: start: 20111201

REACTIONS (1)
  - EYELID PTOSIS [None]
